FAERS Safety Report 13601976 (Version 1)
Quarter: 2017Q2

REPORT INFORMATION
  Report Type: Spontaneous
  Country: US (occurrence: US)
  Receive Date: 20170601
  Receipt Date: 20170601
  Transmission Date: 20170830
  Serious: No
  Sender: FDA-Public Use
  Company Number: US-PFIZER INC-2017241922

PATIENT
  Age: 67 Year
  Sex: Female

DRUGS (3)
  1. LYRICA [Suspect]
     Active Substance: PREGABALIN
     Dosage: 2 DF, DAILY
     Dates: end: 20170131
  2. LYRICA [Suspect]
     Active Substance: PREGABALIN
     Dosage: 4 DF, DAILY ( 4 CAPSULES DAILY)
     Dates: start: 20170201
  3. LYRICA [Suspect]
     Active Substance: PREGABALIN
     Dosage: 75 MG, UNK

REACTIONS (5)
  - Chills [Unknown]
  - Pain in extremity [Unknown]
  - Nausea [Unknown]
  - Weight increased [Unknown]
  - Neuralgia [Unknown]
